FAERS Safety Report 7537816-9 (Version None)
Quarter: 2011Q2

REPORT INFORMATION
  Report Type: 
  Country: None (occurrence: None)
  Receive Date: 20110609
  Receipt Date: 20110531
  Transmission Date: 20111010
  Serious: Yes (Death)
  Sender: FDA-Public Use
  Company Number: PT-BRISTOL-MYERS SQUIBB COMPANY-15812605

PATIENT
  Age: 49 Year
  Sex: Female

DRUGS (2)
  1. FENOFIBRATE [Suspect]
  2. METFORMIN HCL [Suspect]

REACTIONS (1)
  - TOXIC EPIDERMAL NECROLYSIS [None]
